FAERS Safety Report 7108573-5 (Version None)
Quarter: 2010Q4

REPORT INFORMATION
  Report Type: 
  Country: None (occurrence: None)
  Receive Date: 20101117
  Receipt Date: 20101006
  Transmission Date: 20110411
  Serious: Yes (Hospitalization)
  Sender: FDA-Public Use
  Company Number: A0885247A

PATIENT
  Age: 72 Year
  Sex: Male

DRUGS (2)
  1. VOTRIENT [Suspect]
     Dosage: 800MG PER DAY
     Route: 048
     Dates: start: 20100908
  2. SYNTHROID [Concomitant]

REACTIONS (2)
  - FATIGUE [None]
  - HEADACHE [None]
